FAERS Safety Report 16155132 (Version 1)
Quarter: 2019Q2

REPORT INFORMATION
  Report Type: Report from Study
  Country: FR (occurrence: FR)
  Receive Date: 20190403
  Receipt Date: 20190403
  Transmission Date: 20190711
  Serious: Yes (Death)
  Sender: FDA-Public Use
  Company Number: FR-MYLANLABS-2019M1031093

PATIENT
  Sex: Female

DRUGS (1)
  1. EPINEPHRINE. [Suspect]
     Active Substance: EPINEPHRINE
     Indication: CARDIAC ARREST
     Dosage: 1MG BOLUS EVERY 3-5 MINUTES. PREHOSPITAL CUMULATED DOSAGE OF 10 MG
     Route: 040

REACTIONS (2)
  - Drug ineffective [Fatal]
  - Maternal exposure during pregnancy [Recovered/Resolved]
